FAERS Safety Report 15707186 (Version 7)
Quarter: 2020Q1

REPORT INFORMATION
  Report Type: Report from Study
  Country: GB (occurrence: GB)
  Receive Date: 20181210
  Receipt Date: 20200204
  Transmission Date: 20200409
  Serious: Yes (Other)
  Sender: FDA-Public Use
  Company Number: PHHY2018GB178066

PATIENT
  Sex: Male

DRUGS (4)
  1. COSENTYX [Suspect]
     Active Substance: SECUKINUMAB
     Dosage: 300 MG, QMO (PRE-FILLED PEN)
     Route: 058
  2. COSENTYX [Suspect]
     Active Substance: SECUKINUMAB
     Indication: PSORIASIS
     Dosage: 300 MG, QMO
     Route: 058
     Dates: start: 20180411
  3. COSENTYX [Suspect]
     Active Substance: SECUKINUMAB
     Dosage: 300 MG, QMO (PRE-FILLED PEN)
     Route: 058
  4. COSENTYX [Suspect]
     Active Substance: SECUKINUMAB
     Indication: PSORIATIC ARTHROPATHY
     Dosage: 300 MG, QMO
     Route: 058
     Dates: start: 201810

REACTIONS (14)
  - Depressed mood [Unknown]
  - Memory impairment [Unknown]
  - Skin haemorrhage [Unknown]
  - Therapeutic product effect incomplete [Unknown]
  - Pain [Unknown]
  - Stress [Unknown]
  - Inappropriate schedule of product administration [Unknown]
  - Alcohol abuse [Unknown]
  - Skin fissures [Unknown]
  - Brain injury [Unknown]
  - Psoriasis [Recovering/Resolving]
  - Skin hypertrophy [Recovering/Resolving]
  - Skin disorder [Unknown]
  - Pain of skin [Unknown]
